FAERS Safety Report 7514157-7 (Version None)
Quarter: 2011Q2

REPORT INFORMATION
  Report Type: 
  Country: None (occurrence: None)
  Receive Date: 20110531
  Receipt Date: 20110523
  Transmission Date: 20111010
  Serious: Yes (Hospitalization)
  Sender: FDA-Public Use
  Company Number: FR-SANOFI-AVENTIS-2011SA033489

PATIENT
  Age: 60 Year
  Sex: Female

DRUGS (10)
  1. LEXOMIL [Concomitant]
     Route: 048
  2. PLAVIX [Suspect]
     Indication: MITRAL VALVE REPLACEMENT
     Route: 048
     Dates: end: 20110209
  3. LASIX [Concomitant]
     Route: 048
  4. REPAGLINIDE [Concomitant]
     Route: 048
     Dates: end: 20110209
  5. ESOMEPRAZOLE MAGNESIUM [Concomitant]
     Route: 048
     Dates: end: 20110209
  6. POLYETHYLENE GLYCOL [Concomitant]
     Dosage: DOSE:1 UNIT(S)
     Route: 048
     Dates: end: 20110209
  7. COUMADIN [Suspect]
     Indication: MITRAL VALVE REPLACEMENT
     Route: 048
     Dates: end: 20110209
  8. ADANCOR [Concomitant]
     Route: 048
     Dates: end: 20110209
  9. LANTUS [Concomitant]
     Route: 058
     Dates: end: 20110209
  10. PROPAFENONE HCL [Concomitant]
     Indication: ATRIAL FIBRILLATION
     Route: 048

REACTIONS (3)
  - INTERNATIONAL NORMALISED RATIO INCREASED [None]
  - MELAENA [None]
  - ANAEMIA [None]
